FAERS Safety Report 7762682-6 (Version None)
Quarter: 2011Q3

REPORT INFORMATION
  Report Type: 
  Country: None (occurrence: None)
  Receive Date: 20110920
  Receipt Date: 20110914
  Transmission Date: 20111222
  Serious: Yes (Other)
  Sender: FDA-Public Use
  Company Number: BR-ABBOTT-11P-020-0855137-00

PATIENT
  Sex: Female
  Weight: 67 kg

DRUGS (9)
  1. OMEPRAZOLE [Concomitant]
     Indication: PROPHYLAXIS
     Route: 048
  2. OMEPRAZOLE [Concomitant]
     Indication: GASTRIC DISORDER
  3. HUMIRA [Suspect]
     Indication: RHEUMATOID ARTHRITIS
     Route: 058
     Dates: start: 20101001, end: 20110822
  4. FLUOXETINE HCL [Concomitant]
     Indication: DEPRESSION
     Route: 048
     Dates: start: 20100101
  5. TYLENOL-500 [Concomitant]
     Indication: PAIN
     Route: 048
  6. PREDNISONE [Concomitant]
     Indication: PAIN
     Route: 048
     Dates: start: 20110913
  7. LIBREDIBINO [Concomitant]
     Indication: BLOOD PRESSURE MANAGEMENT
     Route: 048
     Dates: start: 20100101
  8. METOPROLOL SUCCINATE [Concomitant]
     Indication: BLOOD PRESSURE MANAGEMENT
     Route: 048
     Dates: start: 20100101
  9. METHOTREXATE [Suspect]
     Indication: RHEUMATOID ARTHRITIS
     Dosage: 8 TABLETS ONCE A WEEK
     Route: 048
     Dates: end: 20110819

REACTIONS (7)
  - VOMITING [None]
  - WEIGHT DECREASED [None]
  - DECREASED APPETITE [None]
  - INFLUENZA [None]
  - ASTHENIA [None]
  - HEPATITIS [None]
  - NAUSEA [None]
